FAERS Safety Report 11172936 (Version 1)
Quarter: 2015Q2

REPORT INFORMATION
  Report Type: Report from Study
  Country: FR (occurrence: FR)
  Receive Date: 20150608
  Receipt Date: 20150608
  Transmission Date: 20150821
  Serious: Yes (Hospitalization, Other)
  Sender: FDA-Public Use
  Company Number: FR-GLAXOSMITHKLINE-FR2015GSK078466

PATIENT
  Age: 66 Year
  Sex: Male

DRUGS (8)
  1. ALDACTONE [Concomitant]
     Active Substance: SPIRONOLACTONE
  2. PLAVIX [Concomitant]
     Active Substance: CLOPIDOGREL BISULFATE
  3. TRIATEC [Concomitant]
     Active Substance: RAMIPRIL
  4. TAHOR [Concomitant]
     Active Substance: ATORVASTATIN CALCIUM
  5. OMEGA-3-ACID ETHYL ESTERS. [Suspect]
     Active Substance: OMEGA-3-ACID ETHYL ESTERS
     Indication: ISCHAEMIC HEART DISEASE PROPHYLAXIS
     Dosage: UNK
     Dates: start: 20090709, end: 20150120
  6. KARDEGIC [Concomitant]
     Active Substance: ASPIRIN LYSINE
  7. CARDENSIEL [Concomitant]
     Active Substance: BISOPROLOL FUMARATE
  8. LASILIX [Concomitant]
     Active Substance: FUROSEMIDE

REACTIONS (1)
  - Neoplasm malignant [Unknown]

NARRATIVE: CASE EVENT DATE: 20140115
